FAERS Safety Report 7168637 (Version 4)
Quarter: 2014Q3

REPORT INFORMATION
  Report Type: Spontaneous
  Country: JP (occurrence: JP)
  Receive Date: 20091106
  Receipt Date: 20140908
  Transmission Date: 20150326
  Serious: Yes (Other)
  Sender: FDA-Public Use
  Company Number: PHHY2009JP19474

PATIENT
  Age: 40 Year
  Sex: Female

DRUGS (7)
  1. GLIVEC [Suspect]
     Active Substance: IMATINIB MESYLATE
     Dosage: 600 MG, DAILY
     Route: 048
     Dates: start: 20090119, end: 20090427
  2. GLIVEC [Suspect]
     Active Substance: IMATINIB MESYLATE
     Dosage: 200 MG, DAILY
     Dates: start: 20080514, end: 20080605
  3. GLIVEC [Suspect]
     Active Substance: IMATINIB MESYLATE
     Dosage: 400 MG, PER DAY
     Dates: start: 20080704
  4. GLIVEC [Suspect]
     Active Substance: IMATINIB MESYLATE
     Indication: CHRONIC MYELOID LEUKAEMIA
     Dosage: 400 MG, DAILY
     Route: 048
     Dates: start: 20080402, end: 20080412
  5. GLIVEC [Suspect]
     Active Substance: IMATINIB MESYLATE
     Dosage: 300 MG, DAILY
     Route: 048
     Dates: start: 20080606, end: 20090118
  6. PREDNISOLONE. [Concomitant]
     Active Substance: PREDNISOLONE
     Dates: start: 20080507
  7. GLIVEC [Suspect]
     Active Substance: IMATINIB MESYLATE
     Dosage: 100 MG, DAILY
     Route: 048
     Dates: start: 20080507, end: 20080513

REACTIONS (12)
  - Oedema [Recovered/Resolved]
  - Drug ineffective [Unknown]
  - Oedema peripheral [Recovered/Resolved]
  - Hepatic function abnormal [Recovered/Resolved]
  - Pyrexia [Unknown]
  - Chromosome analysis abnormal [Unknown]
  - Malignant neoplasm progression [Recovering/Resolving]
  - Face oedema [Recovered/Resolved]
  - Pleural effusion [Recovering/Resolving]
  - Cardiac failure congestive [Recovering/Resolving]
  - Anaemia [Recovered/Resolved]
  - Rash [Unknown]

NARRATIVE: CASE EVENT DATE: 20080402
